FAERS Safety Report 16401058 (Version 3)
Quarter: 2019Q3

REPORT INFORMATION
  Report Type: Spontaneous
  Country: DE (occurrence: DE)
  Receive Date: 20190606
  Receipt Date: 20190827
  Transmission Date: 20191004
  Serious: Yes (Hospitalization)
  Sender: FDA-Public Use
  Company Number: DE-ALLERGAN-1919683US

PATIENT
  Sex: Female
  Weight: 80 kg

DRUGS (5)
  1. IBUPROFEN. [Concomitant]
     Active Substance: IBUPROFEN
  2. BOTOX [Suspect]
     Active Substance: ONABOTULINUMTOXINA
     Indication: BLEPHAROSPASM
     Dosage: UNK, SINGLE
     Dates: start: 20150602, end: 20150602
  3. BOTOX [Suspect]
     Active Substance: ONABOTULINUMTOXINA
     Indication: MUSCLE SPASTICITY
  4. LYRICA [Concomitant]
     Active Substance: PREGABALIN
  5. BOTOX [Suspect]
     Active Substance: ONABOTULINUMTOXINA
     Indication: MUSCLE SPASTICITY

REACTIONS (1)
  - Stevens-Johnson syndrome [Recovered/Resolved]

NARRATIVE: CASE EVENT DATE: 20190604
